FAERS Safety Report 18529673 (Version 2)
Quarter: 2021Q1

REPORT INFORMATION
  Report Type: Spontaneous
  Country: IN (occurrence: IN)
  Receive Date: 20201120
  Receipt Date: 20210329
  Transmission Date: 20210419
  Serious: Yes (Other)
  Sender: FDA-Public Use
  Company Number: IN-PFIZER INC-2020037589

PATIENT
  Age: 47 Year
  Sex: Female
  Weight: 68.8 kg

DRUGS (27)
  1. FULVESTRANT. [Concomitant]
     Active Substance: FULVESTRANT
     Dosage: 250 MG, UNK (GLUTEAL REGION) 8TH DOSE
     Route: 030
     Dates: start: 20190909
  2. PALBACE [Suspect]
     Active Substance: PALBOCICLIB
     Indication: BREAST CANCER METASTATIC
     Dosage: 125 MG, CYCLIC (ONCE A DAY, 21 DAYS AND 1 WEEK GAP)
     Route: 048
     Dates: start: 20190312
  3. NORMAL SALINE [Concomitant]
     Active Substance: SODIUM CHLORIDE
     Indication: VEHICLE SOLUTION USE
     Dosage: 100 ML, UNK
     Dates: start: 20190508
  4. GABANTIN [Concomitant]
     Dosage: 300 MG (1?0?1 X 1 WEEK)
  5. FULVESTRANT. [Concomitant]
     Active Substance: FULVESTRANT
     Dosage: 250 MG, UNK (GLUTEAL REGION) 7TH DOSE
     Route: 030
  6. FASLODEX [Concomitant]
     Active Substance: FULVESTRANT
     Dosage: UNK
     Dates: start: 20190508
  7. FULVESTRANT. [Concomitant]
     Active Substance: FULVESTRANT
     Dosage: 250 MG, UNK (GLUTEAL REGION) 1ST DOSE
     Route: 030
  8. FULVESTRANT. [Concomitant]
     Active Substance: FULVESTRANT
     Dosage: 250 MG, UNK (GLUTEAL REGION) 2ND DOSE
     Route: 030
  9. FULVESTRANT. [Concomitant]
     Active Substance: FULVESTRANT
     Dosage: 250 MG, UNK (GLUTEAL REGION) 5TH DOSE
     Route: 030
     Dates: start: 20190610
  10. NORMAL SALINE [Concomitant]
     Active Substance: SODIUM CHLORIDE
     Dosage: 100 ML, UNK
     Dates: start: 20191108
  11. FULVESTRANT. [Concomitant]
     Active Substance: FULVESTRANT
     Dosage: 250 MG, UNK (GLUTEAL REGION) 11TH DOSE
     Route: 030
     Dates: start: 20191209
  12. NORMAL SALINE [Concomitant]
     Active Substance: SODIUM CHLORIDE
     Dosage: 100 ML, UNK
     Dates: start: 20190909
  13. FASLODEX [Concomitant]
     Active Substance: FULVESTRANT
     Dosage: UNK
     Dates: start: 20200109
  14. FULVESTRANT. [Concomitant]
     Active Substance: FULVESTRANT
     Dosage: 250 MG, UNK (GLUTEAL REGION) 3RD DOSE
     Route: 030
     Dates: start: 20190409
  15. FULVESTRANT. [Concomitant]
     Active Substance: FULVESTRANT
     Dosage: 250 MG, UNK (GLUTEAL REGION) 4TH DOSE
     Route: 030
     Dates: start: 20190508
  16. FULVESTRANT. [Concomitant]
     Active Substance: FULVESTRANT
     Dosage: 250 MG, UNK (GLUTEAL REGION) 6TH DOSE
     Route: 030
     Dates: start: 20190709
  17. FULVESTRANT. [Concomitant]
     Active Substance: FULVESTRANT
     Dosage: 250 MG, UNK (GLUTEAL REGION) 10TH DOSE
     Route: 030
     Dates: start: 20191108
  18. FASLODEX [Concomitant]
     Active Substance: FULVESTRANT
     Dosage: UNK
     Dates: start: 20190409
  19. ZOMETA [Concomitant]
     Active Substance: ZOLEDRONIC ACID
     Dosage: 4 MG, UNK
     Dates: start: 20190909
  20. FULVESTRANT. [Concomitant]
     Active Substance: FULVESTRANT
     Dosage: 250 MG, UNK (GLUTEAL REGION) 9TH DOSE
     Route: 030
  21. FULVESTRANT. [Concomitant]
     Active Substance: FULVESTRANT
     Dosage: 250 MG, UNK (GLUTEAL REGION) 12TH DOSE
     Route: 030
     Dates: start: 20200109
  22. FASLODEX [Concomitant]
     Active Substance: FULVESTRANT
     Dosage: UNK
     Dates: start: 20190610
  23. FASLODEX [Concomitant]
     Active Substance: FULVESTRANT
     Dosage: UNK
     Dates: start: 20190709
  24. FASLODEX [Concomitant]
     Active Substance: FULVESTRANT
     Dosage: UNK
     Dates: start: 20191108
  25. ZOLEDRONIC ACID [Concomitant]
     Active Substance: ZOLEDRONIC ACID
     Dosage: UNK (15 MIN)
     Dates: start: 20190508
  26. FASLODEX [Concomitant]
     Active Substance: FULVESTRANT
     Dosage: UNK
     Dates: start: 20190909
  27. ZOMETA [Concomitant]
     Active Substance: ZOLEDRONIC ACID
     Dosage: 4 MG, UNK
     Dates: start: 20191108

REACTIONS (20)
  - Pruritus [Unknown]
  - Fatigue [Unknown]
  - Alopecia [Unknown]
  - Weight increased [Unknown]
  - Pain [Unknown]
  - Blood pressure systolic increased [Unknown]
  - Headache [Unknown]
  - Arthralgia [Recovered/Resolved]
  - Ear pain [Unknown]
  - Heart rate increased [Unknown]
  - Musculoskeletal pain [Recovering/Resolving]
  - Upper respiratory tract infection [Unknown]
  - Osteonecrosis of jaw [Unknown]
  - Insomnia [Not Recovered/Not Resolved]
  - Dyspnoea [Unknown]
  - Neoplasm progression [Unknown]
  - Pain in extremity [Recovering/Resolving]
  - Peripheral swelling [Unknown]
  - Pyrexia [Unknown]
  - Asthenia [Unknown]

NARRATIVE: CASE EVENT DATE: 2019
